FAERS Safety Report 7331605-6 (Version None)
Quarter: 2011Q1

REPORT INFORMATION
  Report Type: 
  Country: None (occurrence: None)
  Receive Date: 20110228
  Receipt Date: 20110228
  Transmission Date: 20110831
  Serious: Yes (Life-Threatening, Hospitalization)
  Sender: FDA-Public Use
  Company Number: None

PATIENT
  Sex: Male
  Weight: 82.7 kg

DRUGS (3)
  1. CLOZAPINE [Suspect]
     Indication: SCHIZOAFFECTIVE DISORDER
     Dosage: 1 X 25MG (SEE B5) HS ORAL , 2 X 25MG (SEE B5) HS ORAL
     Route: 048
     Dates: start: 20110121
  2. LITHIUM CARBONATE [Concomitant]
  3. CLOZAPINE [Suspect]
     Dosage: 1 X 100MG (SEE B5) HS ORAL
     Route: 048
     Dates: end: 20110203

REACTIONS (14)
  - HEADACHE [None]
  - NECK PAIN [None]
  - PYREXIA [None]
  - NAUSEA [None]
  - NEUROLEPTIC MALIGNANT SYNDROME [None]
  - TOXICITY TO VARIOUS AGENTS [None]
  - TACHYCARDIA [None]
  - INFLUENZA [None]
  - MUSCULOSKELETAL STIFFNESS [None]
  - VIRAL INFECTION [None]
  - PANCREATITIS [None]
  - HYPOTENSION [None]
  - PAIN [None]
  - MYOPERICARDITIS [None]
